FAERS Safety Report 4722156-3 (Version None)
Quarter: 2005Q3

REPORT INFORMATION
  Report Type: 
  Country: None (occurrence: None)
  Receive Date: 20050722
  Receipt Date: 20040816
  Transmission Date: 20060218
  Serious: No
  Sender: FDA-Public Use
  Company Number: US-GLAXOSMITHKLINE-A0522250A

PATIENT
  Age: 56 Year
  Sex: Male

DRUGS (11)
  1. AVANDIA [Suspect]
     Indication: DRUG USE FOR UNKNOWN INDICATION
     Dosage: 2MG PER DAY
     Route: 048
     Dates: start: 20040810
  2. LASIX [Concomitant]
  3. ALLOPURINOL [Concomitant]
  4. METOPROLOL [Concomitant]
  5. AMIODARONE [Concomitant]
  6. ZESTRIL [Concomitant]
  7. FOLIC ACID [Concomitant]
  8. NIACIN [Concomitant]
  9. ASPIRIN [Concomitant]
  10. MULTI-VITAMIN [Concomitant]
  11. ZYRTEC [Concomitant]

REACTIONS (1)
  - BACK PAIN [None]
